FAERS Safety Report 9284043 (Version 2)
Quarter: 2013Q3

REPORT INFORMATION
  Report Type: Spontaneous
  Country: US (occurrence: US)
  Receive Date: 20130510
  Receipt Date: 20130905
  Transmission Date: 20140515
  Serious: Yes (Hospitalization)
  Sender: FDA-Public Use
  Company Number: US-BAYER-2013-058359

PATIENT
  Age: 43 Year
  Sex: Female

DRUGS (10)
  1. YAZ [Suspect]
     Dosage: UNK
     Dates: start: 2010, end: 2011
  2. YASMIN [Suspect]
     Indication: CONTRACEPTION
     Dosage: UNK
     Dates: start: 2010, end: 2011
  3. OCELLA [Suspect]
     Dosage: UNK
     Dates: start: 2010, end: 2011
  4. OMEGA-3 [Concomitant]
     Dosage: 1000 MG, UNK
     Route: 048
  5. MULTIVITAMINS WITH MINERALS [VIT C,B5,B12,B3,B6,B2,B1 HCL,VIT E,ZN [Concomitant]
     Route: 048
  6. CALCIUM CARBONATE [Concomitant]
     Dosage: 600 MG, BID
     Route: 048
  7. COLECALCIFEROL [Concomitant]
     Dosage: UNK UNK, BID
     Route: 048
  8. SIMVASTATIN [Concomitant]
     Dosage: 40 MG, UNK
     Route: 048
  9. PERCOCET [Concomitant]
  10. XANAX [Concomitant]

REACTIONS (8)
  - Pulmonary embolism [Recovered/Resolved]
  - Injury [Recovered/Resolved]
  - Pain [Recovered/Resolved]
  - Emotional distress [None]
  - Abdominal pain [None]
  - General physical health deterioration [Recovered/Resolved]
  - Anxiety [None]
  - Pain [None]
